FAERS Safety Report 7960149-3 (Version None)
Quarter: 2011Q4

REPORT INFORMATION
  Report Type: 
  Country: None (occurrence: None)
  Receive Date: 20111206
  Receipt Date: 20111130
  Transmission Date: 20120403
  Serious: Yes (Disabling, Other)
  Sender: FDA-Public Use
  Company Number: PHFR2011GB04653

PATIENT
  Sex: Female
  Weight: 51 kg

DRUGS (9)
  1. CHLORPHENIRAMINE MALEATE [Concomitant]
     Indication: PRURITUS
     Dosage: 4 MG, EVERY 4 - 6 HOUR
     Route: 048
     Dates: start: 20100905
  2. OMEPRAZOLE [Concomitant]
     Dosage: 20 MG, QD
     Route: 048
     Dates: start: 20110729
  3. LACTULOSE [Concomitant]
     Dosage: 15 ML, BID
     Route: 065
  4. ZOLEDRONOC ACID [Suspect]
     Indication: OSTEOPENIA
     Dosage: UNK UKN, UNK
     Route: 042
     Dates: start: 20110117
  5. FUROSEMIDE [Concomitant]
     Indication: OEDEMA
     Dosage: 40 MG, ONE EACH MORNING
     Route: 048
     Dates: start: 20110217
  6. LACTULOSE [Concomitant]
     Dosage: 3.7 G/5 ML
     Dates: start: 20060106
  7. CO-DYDRAMOL [Concomitant]
     Dosage: 510 MG, ONE/TWO 4TIMES DAILY
     Route: 048
     Dates: start: 20110822
  8. DOMPERIDONE [Concomitant]
     Dosage: 10 MG, PRN
     Route: 048
     Dates: start: 20110815
  9. POTASSIUM CHLORIDE [Concomitant]
     Indication: HYPOKALAEMIA
     Dosage: 600 MG, QD
     Route: 048
     Dates: start: 20090309

REACTIONS (7)
  - PAIN [None]
  - BLOOD PRESSURE INCREASED [None]
  - BONE PAIN [None]
  - ARTHRALGIA [None]
  - HEART RATE INCREASED [None]
  - GENERAL PHYSICAL CONDITION ABNORMAL [None]
  - MALAISE [None]
